FAERS Safety Report 6821258-5 (Version None)
Quarter: 2010Q2

REPORT INFORMATION
  Report Type: 
  Country: None (occurrence: None)
  Receive Date: 20100630
  Receipt Date: 20100622
  Transmission Date: 20101027
  Serious: Yes (Hospitalization)
  Sender: FDA-Public Use
  Company Number: 8048762

PATIENT
  Sex: Female
  Weight: 65 kg

DRUGS (14)
  1. CERTOLIZUMAB PEGOL (CERTOLIZUMAB PEGOL) [Suspect]
     Indication: RHEUMATOID ARTHRITIS
     Dosage: (400 MG 1X/2 WEEKS SUBCUTANEOUS), (200 MG 1X/2 WEEKS SUBCUTANEOUS)
     Route: 058
     Dates: start: 20051220, end: 20060605
  2. CERTOLIZUMAB PEGOL (CERTOLIZUMAB PEGOL) [Suspect]
     Indication: RHEUMATOID ARTHRITIS
     Dosage: (400 MG 1X/2 WEEKS SUBCUTANEOUS), (200 MG 1X/2 WEEKS SUBCUTANEOUS)
     Route: 058
     Dates: start: 20060605, end: 20071204
  3. CERTOLIZUMAB PEGOL (CERTOLIZUMAB PEGOL) [Suspect]
     Indication: RHEUMATOID ARTHRITIS
     Dosage: (400 MG 1X/2 WEEKS SUBCUTANEOUS), (200 MG 1X/2 WEEKS SUBCUTANEOUS)
     Route: 058
     Dates: start: 20071217, end: 20090825
  4. METHOTREXATE [Concomitant]
  5. FOLIC ACID [Concomitant]
  6. METHYLPREDNISOLONE [Concomitant]
  7. LORNOXICAM [Concomitant]
  8. FLUOXETINE [Concomitant]
  9. BROMAZEPAM [Concomitant]
  10. SULPIRIDE [Concomitant]
  11. FENTANYL [Concomitant]
  12. THIOPENTAL SODIUM [Concomitant]
  13. SERUM PHYSIOLOGICAL [Concomitant]
  14. SEVORANE [Concomitant]

REACTIONS (9)
  - ARTHRALGIA [None]
  - ASPARTATE AMINOTRANSFERASE INCREASED [None]
  - BLOOD GLUCOSE INCREASED [None]
  - CULTURE POSITIVE [None]
  - ERYTHEMA [None]
  - JOINT INJURY [None]
  - JOINT SWELLING [None]
  - PROTEINURIA [None]
  - STAPHYLOCOCCAL INFECTION [None]
